FAERS Safety Report 6844811-1 (Version None)
Quarter: 2010Q3

REPORT INFORMATION
  Report Type: 
  Country: None (occurrence: None)
  Receive Date: 20100715
  Receipt Date: 20100705
  Transmission Date: 20110219
  Serious: Yes (Other)
  Sender: FDA-Public Use
  Company Number: JP-PFIZER INC-2010083604

PATIENT

DRUGS (1)
  1. HALCION [Suspect]
     Route: 048

REACTIONS (1)
  - URINARY RETENTION [None]
